FAERS Safety Report 24381717 (Version 1)
Quarter: 2024Q4

REPORT INFORMATION
  Report Type: Report from Study
  Country: ES (occurrence: ES)
  Receive Date: 20241001
  Receipt Date: 20241001
  Transmission Date: 20250115
  Serious: Yes (Hospitalization)
  Sender: ROCHE
  Company Number: None

PATIENT
  Age: 74 Year
  Sex: Female

DRUGS (1)
  1. PERTUZUMAB\TRASTUZUMAB [Suspect]
     Active Substance: PERTUZUMAB\TRASTUZUMAB
     Indication: Breast cancer
     Route: 065
     Dates: start: 20220506, end: 20220808

REACTIONS (1)
  - Acute kidney injury [Recovered/Resolved]

NARRATIVE: CASE EVENT DATE: 20220818
